FAERS Safety Report 25457185 (Version 1)
Quarter: 2025Q2

REPORT INFORMATION
  Report Type: Spontaneous
  Country: US (occurrence: US)
  Receive Date: 20250619
  Receipt Date: 20250619
  Transmission Date: 20250717
  Serious: Yes (Other)
  Sender: NOVO NORDISK
  Company Number: US-NOVOPROD-1459890

PATIENT
  Sex: Female

DRUGS (1)
  1. NOVOLOG [Suspect]
     Active Substance: INSULIN ASPART
     Indication: Product used for unknown indication

REACTIONS (5)
  - Blindness [Not Recovered/Not Resolved]
  - Eye haemorrhage [Unknown]
  - Ocular stroke [Unknown]
  - Ocular discomfort [Unknown]
  - Treatment noncompliance [Unknown]
